FAERS Safety Report 9357462 (Version 2)
Quarter: 2013Q3

REPORT INFORMATION
  Report Type: Report from Study
  Country: JP (occurrence: JP)
  Receive Date: 20130620
  Receipt Date: 20130812
  Transmission Date: 20140515
  Serious: Yes (Other)
  Sender: FDA-Public Use
  Company Number: JP-GENZYME-THYM-1003865

PATIENT
  Age: 23 Year
  Sex: Female
  Weight: 46 kg

DRUGS (8)
  1. THYMOGLOBULIN [Suspect]
     Indication: BONE MARROW CONDITIONING REGIMEN
     Dosage: 120 MG, QD
     Route: 065
     Dates: start: 20120923, end: 20120924
  2. ENDOXAN [Suspect]
     Indication: BONE MARROW CONDITIONING REGIMEN
     Dosage: UNK
     Route: 065
     Dates: start: 20120923, end: 20120926
  3. PROGRAF [Suspect]
     Indication: BONE MARROW CONDITIONING REGIMEN
     Dosage: INJECTION
     Route: 065
     Dates: start: 20120927, end: 20121104
  4. PROGRAF [Suspect]
     Dosage: CAPSULE
     Route: 065
     Dates: start: 20121105
  5. PRIDOL [Concomitant]
     Indication: PROPHYLAXIS
     Dosage: UNK
     Route: 065
     Dates: start: 20120923, end: 20120924
  6. GRANISETRON [Concomitant]
     Indication: PROPHYLAXIS
     Dosage: UNK
     Route: 065
     Dates: start: 20120923, end: 20120926
  7. PREDONINE [Concomitant]
     Indication: PROPHYLAXIS
     Dosage: UNK
     Route: 065
     Dates: start: 20120925, end: 20121008
  8. METHOTREXATE [Concomitant]
     Indication: PROPHYLAXIS AGAINST GRAFT VERSUS HOST DISEASE
     Dosage: UNK
     Route: 065
     Dates: start: 20120929, end: 20121003

REACTIONS (6)
  - Posterior reversible encephalopathy syndrome [Recovered/Resolved]
  - Neutropenia [Recovered/Resolved]
  - Toxic skin eruption [Recovered/Resolved]
  - Nausea [Recovered/Resolved]
  - Pyrexia [Recovered/Resolved]
  - Cytomegalovirus test positive [Recovered/Resolved]
